FAERS Safety Report 5023517-8 (Version None)
Quarter: 2006Q2

REPORT INFORMATION
  Report Type: 
  Country: None (occurrence: None)
  Receive Date: 20060612
  Receipt Date: 20060608
  Transmission Date: 20061013
  Serious: Yes (Other)
  Sender: FDA-Public Use
  Company Number: US-GLAXOSMITHKLINE-A0608376A

PATIENT
  Age: 85 Year
  Sex: Female

DRUGS (3)
  1. AVANDARYL [Suspect]
     Dosage: 4MG PER DAY
     Route: 048
     Dates: start: 20060605
  2. METFORMIN [Concomitant]
  3. ASPIRIN [Concomitant]

REACTIONS (6)
  - ASTHENIA [None]
  - DISORIENTATION [None]
  - FEELING COLD [None]
  - HYPOGLYCAEMIA [None]
  - IRRITABILITY [None]
  - SOMNOLENCE [None]
